FAERS Safety Report 8714598 (Version 3)
Quarter: 2012Q4

REPORT INFORMATION
  Report Type: 
  Country: US (occurrence: US)
  Receive Date: 20120809
  Receipt Date: 20121226
  Transmission Date: 20130627
  Serious: Yes (Hospitalization)
  Sender: FDA-Public Use
  Company Number: US-BAYER-2012-077720

PATIENT
  Age: 26 Year
  Sex: Female
  Weight: 79.37 kg

DRUGS (4)
  1. YAZ [Suspect]
     Indication: ACNE
     Dosage: UNK
     Dates: start: 200701, end: 201002
  2. YAZ [Suspect]
     Indication: CONTRACEPTION
  3. NEXIUM [Concomitant]
     Dosage: 20 mg, UNK
  4. GLYCOPYRROLATE [Concomitant]
     Dosage: 2 mg, UNK

REACTIONS (6)
  - Cholelithiasis [None]
  - Cholecystitis chronic [None]
  - Bile duct stone [None]
  - Injury [None]
  - Pain [None]
  - Pain [None]
